FAERS Safety Report 16748145 (Version 5)
Quarter: 2020Q1

REPORT INFORMATION
  Report Type: Report from Study
  Country: US (occurrence: US)
  Receive Date: 20190827
  Receipt Date: 20200331
  Transmission Date: 20200409
  Serious: Yes (Hospitalization, Disabling)
  Sender: FDA-Public Use
  Company Number: US-GILEAD-2019-0418943

PATIENT
  Age: 64 Year
  Sex: Male
  Weight: 65.1 kg

DRUGS (63)
  1. AXICABTAGENE CILOLEUCEL [Suspect]
     Active Substance: AXICABTAGENE CILOLEUCEL
     Indication: DIFFUSE LARGE B-CELL LYMPHOMA
     Dosage: ^68^
     Route: 042
     Dates: start: 20190709, end: 20190709
  2. ALVESCO [Concomitant]
     Active Substance: CICLESONIDE
     Dosage: TWICE DAILY
     Dates: start: 20190418
  3. ZOFRAN [Concomitant]
     Active Substance: ONDANSETRON HYDROCHLORIDE
     Dosage: ONCE
     Dates: start: 20190705, end: 20190705
  4. BENADRYL [Concomitant]
     Active Substance: DIPHENHYDRAMINE HYDROCHLORIDE
     Dosage: AS NECESSARY
     Dates: start: 20190704, end: 20190704
  5. COLACE [Concomitant]
     Active Substance: DOCUSATE SODIUM
     Dosage: ONCE
     Dates: start: 20190723, end: 20190723
  6. KEPPRA [Concomitant]
     Active Substance: LEVETIRACETAM
     Dosage: TWICE DAILY
     Dates: start: 20190721
  7. POTASSIUM CHLORIDE. [Concomitant]
     Active Substance: POTASSIUM CHLORIDE
     Dosage: AS NECESSARY
     Dates: start: 20190717, end: 20190718
  8. DESYREL [Concomitant]
     Active Substance: TRAZODONE HYDROCHLORIDE
     Dosage: AS NECESSARY
     Dates: start: 20190721, end: 20190723
  9. LIDOCAINE. [Concomitant]
     Active Substance: LIDOCAINE
     Dosage: AS NECESSARY
     Dates: start: 20190715, end: 20190715
  10. UTOMILUMAB [Suspect]
     Active Substance: UTOMILUMAB
     Indication: DIFFUSE LARGE B-CELL LYMPHOMA
     Dosage: 30 MG, ONCE
     Route: 042
     Dates: start: 20190710, end: 20190710
  11. REVATIO [Concomitant]
     Active Substance: SILDENAFIL CITRATE
     Dosage: AS NECESSARY
     Dates: start: 2017
  12. EMEND [FOSAPREPITANT MEGLUMINE] [Concomitant]
     Dosage: ONCE
     Dates: start: 20190704, end: 20190704
  13. PEPCID [Concomitant]
     Active Substance: FAMOTIDINE
     Dosage: TWICE DAILY
     Dates: start: 20190708, end: 20190711
  14. NORMAL SALINE [Concomitant]
     Active Substance: SODIUM CHLORIDE
     Dosage: CONTINUOUS
     Dates: start: 20190708, end: 20190719
  15. NORMAL SALINE [Concomitant]
     Active Substance: SODIUM CHLORIDE
     Dosage: THREE TIMES DAILY
     Dates: start: 20190709, end: 20190710
  16. NORMAL SALINE [Concomitant]
     Active Substance: SODIUM CHLORIDE
     Dosage: ONCE
     Dates: start: 20190722, end: 20190722
  17. POTASSIUM CHLORIDE. [Concomitant]
     Active Substance: POTASSIUM CHLORIDE
     Dosage: AS NECESSARY
     Dates: start: 20190709, end: 20190719
  18. DILAUDID [Concomitant]
     Active Substance: HYDROMORPHONE HYDROCHLORIDE
     Dosage: ONCE
     Dates: start: 20190714, end: 20190714
  19. IBUPROFEN. [Concomitant]
     Active Substance: IBUPROFEN
     Dosage: ONCE
     Dates: start: 20190715, end: 20190715
  20. MELATONIN [Concomitant]
     Active Substance: MELATONIN
     Dosage: AS NECESSARY
     Dates: start: 20190719
  21. ACYCLOVIR [ACICLOVIR] [Concomitant]
     Active Substance: ACYCLOVIR
     Dosage: THREE TIMES DAILY
     Dates: start: 20190704
  22. ATIVAN [Concomitant]
     Active Substance: LORAZEPAM
     Dosage: ONCE
     Dates: start: 20190721, end: 20190721
  23. NORMAL SALINE [Concomitant]
     Active Substance: SODIUM CHLORIDE
     Dosage: ONCE
     Dates: start: 20190715, end: 20190715
  24. NORMAL SALINE [Concomitant]
     Active Substance: SODIUM CHLORIDE
     Dosage: CONTINUOUS
     Dates: start: 20190721, end: 20190721
  25. SENOKOT [Concomitant]
     Active Substance: SENNOSIDES
     Dosage: AS NECESSARY
     Dates: start: 20190709, end: 20190714
  26. MESNA. [Suspect]
     Active Substance: MESNA
     Indication: PROPHYLAXIS
     Route: 042
  27. ZOFRAN [Concomitant]
     Active Substance: ONDANSETRON HYDROCHLORIDE
     Dosage: ONCE
     Dates: start: 20190704, end: 20190704
  28. ZOFRAN [Concomitant]
     Active Substance: ONDANSETRON HYDROCHLORIDE
     Dosage: DAILY
     Dates: start: 20190708, end: 20190710
  29. KEPPRA [Concomitant]
     Active Substance: LEVETIRACETAM
     Dosage: TWICE DAILY
     Dates: start: 20190708, end: 20190721
  30. DESYREL [Concomitant]
     Active Substance: TRAZODONE HYDROCHLORIDE
     Dosage: ONCE
     Dates: start: 20190718, end: 20190718
  31. ACETAMINOPHEN. [Concomitant]
     Active Substance: ACETAMINOPHEN
     Dosage: ONCE
     Dates: start: 20190715, end: 20190715
  32. ZOSYN [Concomitant]
     Active Substance: PIPERACILLIN SODIUM\TAZOBACTAM SODIUM
     Dosage: THREE TIMES DAILY
     Dates: start: 20190715, end: 20190715
  33. FENTANYL. [Concomitant]
     Active Substance: FENTANYL
     Dosage: AS NECESSARY
     Dates: start: 20190715, end: 20190715
  34. LIDOCAINE. [Concomitant]
     Active Substance: LIDOCAINE
     Dosage: AS NECESSARY
     Dates: start: 20190715, end: 20190715
  35. PROVENTIL [Concomitant]
     Active Substance: ALBUTEROL
     Dosage: ONCE
     Dates: start: 20190718, end: 20190718
  36. CYCLOPHOSPHAMIDE. [Suspect]
     Active Substance: CYCLOPHOSPHAMIDE
     Indication: BONE MARROW CONDITIONING REGIMEN
     Dosage: ^500,^ QD
     Route: 042
     Dates: start: 20190704, end: 20190706
  37. NORMAL SALINE [Concomitant]
     Active Substance: SODIUM CHLORIDE
     Dosage: ONCE
     Dates: start: 20190714, end: 20190714
  38. GADOBENATE DIMEGLUMINE [Concomitant]
     Active Substance: GADOBENATE DIMEGLUMINE
     Dosage: ONCE
     Dates: start: 20190721, end: 20190721
  39. LIDOCAINE. [Concomitant]
     Active Substance: LIDOCAINE
     Dosage: ONCE
     Dates: start: 20190721, end: 20190721
  40. PROTONIX [Concomitant]
     Active Substance: PANTOPRAZOLE SODIUM
     Dosage: DAILY
     Dates: start: 20190718
  41. ZYRTEC [Concomitant]
     Active Substance: CETIRIZINE HYDROCHLORIDE
     Dosage: AS NECESSARY
     Dates: start: 20190719
  42. FLUDARABINE [Suspect]
     Active Substance: FLUDARABINE PHOSPHATE
     Indication: BONE MARROW CONDITIONING REGIMEN
     Dosage: ^30,^ QD
     Route: 042
     Dates: start: 20190704, end: 20190706
  43. COMPAZINE [Concomitant]
     Active Substance: PROCHLORPERAZINE MALEATE
     Dosage: AS NECESSARY
     Dates: start: 20190704, end: 20190707
  44. COLACE [Concomitant]
     Active Substance: DOCUSATE SODIUM
     Dosage: AS NECESSARY
     Dates: start: 20190708, end: 20190711
  45. TYLENOL [Concomitant]
     Active Substance: ACETAMINOPHEN
     Dosage: ONCE
     Dates: start: 20190709, end: 20190709
  46. TYLENOL [Concomitant]
     Active Substance: ACETAMINOPHEN
     Dosage: OTHER
     Dates: start: 20190713, end: 20190716
  47. NEUPOGEN [Concomitant]
     Active Substance: FILGRASTIM
     Dosage: AS NECESSARY
     Dates: start: 20190714, end: 20190717
  48. ACETAMINOPHEN. [Concomitant]
     Active Substance: ACETAMINOPHEN
     Dosage: ONCE
     Dates: start: 20190714, end: 20190714
  49. VERSED [Concomitant]
     Active Substance: MIDAZOLAM HYDROCHLORIDE
     Dosage: AS NECESSARY
     Dates: start: 20190715, end: 20190715
  50. MELATONIN [Concomitant]
     Active Substance: MELATONIN
     Dosage: DAILY
     Dates: start: 20190717, end: 20190718
  51. ZOFRAN [Concomitant]
     Active Substance: ONDANSETRON HYDROCHLORIDE
     Dosage: ONCE
     Dates: start: 20190706, end: 20190706
  52. NORMAL SALINE [Concomitant]
     Active Substance: SODIUM CHLORIDE
     Dosage: ONCE
     Dates: start: 20190719, end: 20190719
  53. TYLENOL [Concomitant]
     Active Substance: ACETAMINOPHEN
     Dosage: DAILY
     Dates: start: 20190722, end: 20190723
  54. DESYREL [Concomitant]
     Active Substance: TRAZODONE HYDROCHLORIDE
     Dosage: AS NECESSARY
     Dates: start: 20190709, end: 20190718
  55. ZOSYN [Concomitant]
     Active Substance: PIPERACILLIN SODIUM\TAZOBACTAM SODIUM
     Dosage: ONCE
     Dates: start: 20190714, end: 20190714
  56. MELATONIN [Concomitant]
     Active Substance: MELATONIN
     Dosage: ONCE
     Dates: start: 20190716, end: 20190716
  57. VENTOLIN HFA [Concomitant]
     Active Substance: ALBUTEROL SULFATE
     Dosage: AS NECESSARY
     Dates: start: 2017
  58. ZOFRAN [Concomitant]
     Active Substance: ONDANSETRON HYDROCHLORIDE
     Dosage: AS NECESSARY
     Dates: start: 20190719
  59. BENADRYL [Concomitant]
     Active Substance: DIPHENHYDRAMINE HYDROCHLORIDE
     Dosage: ONCE
     Dates: start: 20190709, end: 20190709
  60. ALLOPURINOL. [Concomitant]
     Active Substance: ALLOPURINOL
     Dosage: DAILY
     Dates: start: 20190704, end: 20190704
  61. ATIVAN [Concomitant]
     Active Substance: LORAZEPAM
     Dosage: AS NECESSARY
     Dates: start: 20190704, end: 20190708
  62. GADOBENATE DIMEGLUMINE [Concomitant]
     Active Substance: GADOBENATE DIMEGLUMINE
     Dosage: ONCE
     Dates: start: 20190714, end: 20190714
  63. OXYCODONE [Concomitant]
     Active Substance: OXYCODONE
     Dosage: ONCE
     Dates: start: 20190718, end: 20190718

REACTIONS (6)
  - Hypotension [Recovered/Resolved]
  - Aphasia [Recovered/Resolved]
  - Hypotension [Recovered/Resolved]
  - Confusional state [Recovering/Resolving]
  - Pyrexia [Recovered/Resolved]
  - Dizziness [Recovered/Resolved]

NARRATIVE: CASE EVENT DATE: 20190716
